FAERS Safety Report 10098329 (Version 1)
Quarter: 2014Q2

REPORT INFORMATION
  Report Type: Spontaneous
  Country: US (occurrence: None)
  Receive Date: 20140421
  Receipt Date: 20140421
  Transmission Date: 20141212
  Serious: Yes (Hospitalization, Other)
  Sender: FDA-Public Use
  Company Number: ADR-2014237050

PATIENT
  Sex: Male

DRUGS (1)
  1. AMLODIPINE BESYLATE [Suspect]
     Indication: PRODUCT USED FOR UNKNOWN INDICATION
     Dosage: 2.5 MG, UNK + ORAL
     Route: 048

REACTIONS (5)
  - Nausea [None]
  - Hyperhidrosis [None]
  - Loss of consciousness [None]
  - Hypotension [None]
  - Dehydration [None]
